FAERS Safety Report 20281842 (Version 2)
Quarter: 2022Q1

REPORT INFORMATION
  Report Type: Spontaneous
  Country: US (occurrence: US)
  Receive Date: 20220103
  Receipt Date: 20220208
  Transmission Date: 20220423
  Serious: No
  Sender: FDA-Public Use
  Company Number: US-SA-SAC20211231000431

PATIENT
  Age: 40 Year
  Sex: Female

DRUGS (1)
  1. DUPIXENT [Suspect]
     Active Substance: DUPILUMAB
     Dosage: 300 MG OTHER
     Route: 058
     Dates: start: 20211227

REACTIONS (3)
  - Injection site pruritus [Unknown]
  - Injection site vesicles [Unknown]
  - Injection site swelling [Unknown]

NARRATIVE: CASE EVENT DATE: 20211201
